FAERS Safety Report 17474682 (Version 1)
Quarter: 2020Q1

REPORT INFORMATION
  Report Type: Report from Study
  Country: CO (occurrence: CO)
  Receive Date: 20200228
  Receipt Date: 20200228
  Transmission Date: 20200409
  Serious: Yes (Hospitalization, Other)
  Sender: FDA-Public Use
  Company Number: CO-JNJFOC-20190721479

PATIENT
  Age: 46 Year
  Sex: Male
  Weight: 83 kg

DRUGS (1)
  1. STELARA [Suspect]
     Active Substance: USTEKINUMAB
     Indication: PSORIASIS
     Dosage: LAST APPLICATION OF MEDICATION WAS ON 23-MAR-2019
     Route: 058
     Dates: start: 20170616, end: 20190323

REACTIONS (3)
  - Urethral obstruction [Recovered/Resolved]
  - Urinary tract infection [Recovered/Resolved]
  - Nephrolithiasis [Recovered/Resolved]

NARRATIVE: CASE EVENT DATE: 20190607
